FAERS Safety Report 13511164 (Version 2)
Quarter: 2017Q2

REPORT INFORMATION
  Report Type: Spontaneous
  Country: US (occurrence: US)
  Receive Date: 20170503
  Receipt Date: 20170615
  Transmission Date: 20170830
  Serious: Yes (Other)
  Sender: FDA-Public Use
  Company Number: US-BRISTOL-MYERS SQUIBB COMPANY-BMS-2017-036261

PATIENT

DRUGS (2)
  1. ABILIFY [Suspect]
     Active Substance: ARIPIPRAZOLE
     Indication: PERSONALITY DISORDER
     Dosage: 5 MG, UNK
     Route: 065
  2. ABILIFY [Suspect]
     Active Substance: ARIPIPRAZOLE
     Indication: ANXIETY
     Dosage: 2 MG, UNK
     Route: 065
     Dates: start: 20100115, end: 20141201

REACTIONS (7)
  - Emotional distress [Unknown]
  - Gambling [Unknown]
  - Drug use disorder [Unknown]
  - Brain injury [Unknown]
  - Product use in unapproved indication [Unknown]
  - Injury [Unknown]
  - Mental disorder [Unknown]
